FAERS Safety Report 4600995-7 (Version None)
Quarter: 2005Q1

REPORT INFORMATION
  Report Type: 
  Country: None (occurrence: None)
  Receive Date: 20050307
  Receipt Date: 20050307
  Transmission Date: 20050727
  Serious: Yes (Hospitalization)
  Sender: FDA-Public Use
  Company Number: None

PATIENT
  Age: 73 Year
  Sex: Male
  Weight: 62.2 kg

DRUGS (3)
  1. ASPIRIN [Suspect]
     Indication: CORONARY ARTERY DISEASE
     Dosage: 81MG QD
  2. ASPIRIN [Suspect]
     Indication: CORONARY ARTERY SURGERY
     Dosage: 81MG QD
  3. PLAVIX [Concomitant]

REACTIONS (4)
  - CHOKING [None]
  - HAEMATEMESIS [None]
  - MALLORY-WEISS SYNDROME [None]
  - VOMITING [None]
